FAERS Safety Report 8690765 (Version 4)
Quarter: 2013Q4

REPORT INFORMATION
  Report Type: Spontaneous
  Country: US (occurrence: US)
  Receive Date: 20120727
  Receipt Date: 20131024
  Transmission Date: 20140711
  Serious: No
  Sender: FDA-Public Use
  Company Number: US-ASTRAZENECA-2012SE28206

PATIENT
  Age: 57 Year
  Sex: Female
  Weight: 65.8 kg

DRUGS (19)
  1. SEROQUEL XR [Suspect]
     Indication: SLEEP DISORDER
     Route: 048
     Dates: start: 201203
  2. SEROQUEL XR [Suspect]
     Indication: BIPOLAR I DISORDER
     Route: 048
     Dates: start: 201203
  3. SEROQUEL XR [Suspect]
     Indication: SLEEP DISORDER
     Route: 048
  4. SEROQUEL XR [Suspect]
     Indication: BIPOLAR I DISORDER
     Route: 048
  5. SEROQUEL XR [Suspect]
     Indication: SLEEP DISORDER
     Route: 048
  6. SEROQUEL XR [Suspect]
     Indication: BIPOLAR I DISORDER
     Route: 048
  7. SEROQUEL XR [Suspect]
     Indication: SLEEP DISORDER
     Route: 048
  8. SEROQUEL XR [Suspect]
     Indication: BIPOLAR I DISORDER
     Route: 048
  9. SEROQUEL XR [Suspect]
     Indication: SLEEP DISORDER
     Route: 048
  10. SEROQUEL XR [Suspect]
     Indication: BIPOLAR I DISORDER
     Route: 048
  11. VITAMIN [Concomitant]
  12. CLONAZEPAM [Concomitant]
  13. VICODIN [Concomitant]
     Indication: PAIN
  14. PRECISE TYLENOL [Concomitant]
  15. CAPZASIN HP CREAM [Concomitant]
  16. NERVE PILLS [Concomitant]
  17. PAIN PATCH [Concomitant]
  18. CREAMS [Concomitant]
  19. KLONOPIN [Concomitant]
     Indication: NERVOUS SYSTEM DISORDER

REACTIONS (11)
  - Arthritis [Unknown]
  - Tendonitis [Unknown]
  - Bursitis [Unknown]
  - Myositis [Unknown]
  - Insomnia [Unknown]
  - Oropharyngeal pain [Unknown]
  - Off label use [Unknown]
  - Drug ineffective for unapproved indication [Unknown]
  - Drug ineffective [Unknown]
  - Drug dispensing error [Unknown]
  - Drug dose omission [Unknown]
